FAERS Safety Report 4515232-1 (Version None)
Quarter: 2004Q4

REPORT INFORMATION
  Report Type: 
  Country: None (occurrence: None)
  Receive Date: 20041126
  Receipt Date: 20041111
  Transmission Date: 20050328
  Serious: Yes (Other)
  Sender: FDA-Public Use
  Company Number: 2004093954

PATIENT
  Age: 47 Year
  Sex: Female

DRUGS (2)
  1. SOMATROPIN (SOMATROPIN) [Suspect]
     Indication: BLOOD GROWTH HORMONE DECREASED
     Dosage: 0.3 MG (0.3 MG, DAILY), SUBCUTANEOUS
     Route: 058
     Dates: start: 20041007, end: 20041101
  2. SYNTHROID (SODIUM LEVOTHYROXINE) (LEVOTHYROXINE SODIUM) [Concomitant]

REACTIONS (7)
  - ACNE [None]
  - ALOPECIA [None]
  - BREAST DYSPLASIA [None]
  - CONDITION AGGRAVATED [None]
  - HAEMANGIOMA [None]
  - INSOMNIA [None]
  - OEDEMA [None]
